FAERS Safety Report 4620909-3 (Version None)
Quarter: 2005Q1

REPORT INFORMATION
  Report Type: 
  Country: None (occurrence: None)
  Receive Date: 20050325
  Receipt Date: 20050315
  Transmission Date: 20050727
  Serious: Yes (Hospitalization)
  Sender: FDA-Public Use
  Company Number: 2005-126348-NL

PATIENT
  Age: 31 Year
  Sex: Female

DRUGS (2)
  1. MENOTROPINS [Suspect]
  2. CHORIONIC GONADOTROPIN [Suspect]

REACTIONS (6)
  - ABORTION THREATENED [None]
  - ECTOPIC PREGNANCY [None]
  - HAEMORRHAGIC ASCITES [None]
  - LOSS OF CONSCIOUSNESS [None]
  - NERVOUS SYSTEM DISORDER [None]
  - OVARIAN NEOPLASM [None]
